FAERS Safety Report 16862627 (Version 3)
Quarter: 2019Q4

REPORT INFORMATION
  Report Type: Report from Study
  Country: US (occurrence: US)
  Receive Date: 20190927
  Receipt Date: 20191018
  Transmission Date: 20200122
  Serious: Yes (Hospitalization, Other)
  Sender: FDA-Public Use
  Company Number: US-MALLINCKRODT-T201906591

PATIENT
  Age: 64 Year
  Sex: Male

DRUGS (3)
  1. REPOSITORY CORTICOTROPIN INJECTION [Suspect]
     Active Substance: CORTICOTROPIN
     Indication: NEPHROTIC SYNDROME
     Dosage: 80 UNITS, TWICE WEEKLY
     Route: 058
     Dates: start: 201909
  2. PREDNISONE. [Concomitant]
     Active Substance: PREDNISONE
     Indication: PRODUCT USED FOR UNKNOWN INDICATION
     Dosage: UNK, UNK
     Route: 065
  3. REPOSITORY CORTICOTROPIN INJECTION [Suspect]
     Active Substance: CORTICOTROPIN
     Dosage: UNK
     Route: 065

REACTIONS (4)
  - Dialysis [Unknown]
  - Staphylococcal infection [Unknown]
  - Renal impairment [Unknown]
  - Arteriovenous fistula site haemorrhage [Unknown]

NARRATIVE: CASE EVENT DATE: 201909
